FAERS Safety Report 4299249-0 (Version None)
Quarter: 2004Q1

REPORT INFORMATION
  Report Type: 
  Country: None (occurrence: None)
  Receive Date: 20040217
  Receipt Date: 20040203
  Transmission Date: 20041129
  Serious: Yes (Hospitalization, Other)
  Sender: FDA-Public Use
  Company Number: NSADSS2003001380

PATIENT
  Age: 34 Year
  Sex: Female

DRUGS (6)
  1. REMICADE [Suspect]
     Indication: CROHN'S DISEASE
     Dosage: 1 IN 1 AS NECESSARY, INTRAVENOUS DRIP
     Route: 041
     Dates: start: 20020101, end: 20020101
  2. CELEBREX [Concomitant]
  3. NORTRIPTYLINE HCL [Concomitant]
  4. EFFEXOR [Concomitant]
  5. ENTOCORT (BUDESONIDE) [Concomitant]
  6. CYCLOSPORINE [Concomitant]

REACTIONS (6)
  - CHOLANGITIS ACUTE [None]
  - HEPATIC FAILURE [None]
  - HEPATIC NECROSIS [None]
  - HEPATITIS FULMINANT [None]
  - LIVER TRANSPLANT [None]
  - VIRAL INFECTION [None]
